FAERS Safety Report 5158642-4 (Version None)
Quarter: 2006Q4

REPORT INFORMATION
  Report Type: 
  Country: None (occurrence: None)
  Receive Date: 20061128
  Receipt Date: 20061116
  Transmission Date: 20070319
  Serious: Yes (Other)
  Sender: FDA-Public Use
  Company Number: US-ELI_LILLY_AND_COMPANY-US200611003272

PATIENT
  Age: 76 Year
  Sex: Female

DRUGS (2)
  1. HUMULIN R [Suspect]
     Indication: DIABETES MELLITUS
     Dosage: UNK, UNKNOWN
     Dates: start: 19980101
  2. LANTUS [Concomitant]
     Indication: DIABETES MELLITUS
     Dosage: UNK, UNKNOWN

REACTIONS (8)
  - ANKLE FRACTURE [None]
  - ARTHRITIS [None]
  - CATARACT [None]
  - FALL [None]
  - MACULAR DEGENERATION [None]
  - NEUROPATHY [None]
  - VISUAL ACUITY REDUCED [None]
  - WEIGHT INCREASED [None]
